FAERS Safety Report 6326664-3 (Version None)
Quarter: 2009Q3

REPORT INFORMATION
  Report Type: 
  Country: None (occurrence: None)
  Receive Date: 20090825
  Receipt Date: 20090521
  Transmission Date: 20100115
  Serious: Yes (Other)
  Sender: FDA-Public Use
  Company Number: BR-PFIZER INC-2009181348

PATIENT

DRUGS (2)
  1. VORICONAZOLE [Suspect]
  2. CYCLOSPORINE [Suspect]

REACTIONS (2)
  - HYPOVITAMINOSIS [None]
  - NERVOUS SYSTEM DISORDER [None]
